FAERS Safety Report 7271869-0 (Version None)
Quarter: 2011Q1

REPORT INFORMATION
  Report Type: 
  Country: None (occurrence: None)
  Receive Date: 20110203
  Receipt Date: 20110125
  Transmission Date: 20110831
  Serious: Yes (Hospitalization)
  Sender: FDA-Public Use
  Company Number: CH-JNJFOC-20110106575

PATIENT
  Age: 87 Year
  Sex: Female

DRUGS (18)
  1. RISPERDAL [Suspect]
     Route: 048
  2. RISPERDAL [Suspect]
     Indication: CIRCADIAN RHYTHM SLEEP DISORDER
     Route: 048
  3. RISPERDAL [Suspect]
     Indication: AGGRESSION
     Route: 048
  4. REMERON [Concomitant]
     Indication: AGGRESSION
     Route: 048
  5. REMERON [Concomitant]
     Route: 048
  6. REMERON [Concomitant]
     Indication: CIRCADIAN RHYTHM SLEEP DISORDER
     Route: 048
  7. TRIMIPRAMINE [Concomitant]
     Indication: AGGRESSION
     Route: 048
  8. OXYCONTIN [Concomitant]
     Route: 048
  9. LORAZEPAM [Concomitant]
     Route: 065
  10. RISPERDAL [Suspect]
     Route: 048
  11. TORASEMID [Concomitant]
     Route: 048
  12. DIPIPERON [Suspect]
     Route: 048
  13. NOVALGIN [Concomitant]
     Route: 048
  14. REMERON [Concomitant]
     Route: 048
  15. DIPIPERON [Suspect]
     Indication: ILL-DEFINED DISORDER
     Route: 048
  16. LISOPRIL [Concomitant]
     Route: 048
  17. LISITRIL COMP. [Concomitant]
     Dosage: 10/12, 5 MG
     Route: 048
  18. TRIMIPRAMINE [Concomitant]
     Indication: CIRCADIAN RHYTHM SLEEP DISORDER
     Route: 048

REACTIONS (1)
  - DELIRIUM [None]
